FAERS Safety Report 7304955-7 (Version None)
Quarter: 2011Q1

REPORT INFORMATION
  Report Type: 
  Country: None (occurrence: None)
  Receive Date: 20110222
  Receipt Date: 20110211
  Transmission Date: 20110831
  Serious: Yes (Other)
  Sender: FDA-Public Use
  Company Number: AR-AMGEN-ARGSP2011009433

PATIENT
  Age: 50 Year
  Sex: Female
  Weight: 80 kg

DRUGS (4)
  1. ENBREL [Suspect]
     Indication: RHEUMATOID ARTHRITIS
     Dosage: 50 MG, WEEKLY
     Route: 058
     Dates: start: 20100601, end: 20100801
  2. DICLOFENAC [Concomitant]
     Dosage: UNK UNK, PRN
     Route: 048
  3. CORTICOSTEROIDS [Concomitant]
     Dosage: UNK
     Route: 048
  4. METHOTREXATE [Concomitant]
     Dosage: UNK
     Route: 048

REACTIONS (4)
  - ABSCESS [None]
  - IMMUNODEFICIENCY [None]
  - ULCER [None]
  - PNEUMONIA [None]
